FAERS Safety Report 14325973 (Version 2)
Quarter: 2018Q2

REPORT INFORMATION
  Report Type: Not Available
  Country: US (occurrence: US)
  Receive Date: 20171226
  Receipt Date: 20180419
  Transmission Date: 20180711
  Serious: No
  Sender: FDA-Public Use
  Company Number: US-NEUROCRINE BIOSCIENCES INC.-2017NBI01429

PATIENT
  Sex: Female
  Weight: 136.2 kg

DRUGS (11)
  1. LIPITOR [Concomitant]
     Active Substance: ATORVASTATIN CALCIUM
     Dosage: EVENING
  2. RISPERDAL [Concomitant]
     Active Substance: RISPERIDONE
  3. VITAMIN E [Concomitant]
     Active Substance: .ALPHA.-TOCOPHEROL
  4. INGREZZA [Suspect]
     Active Substance: VALBENAZINE
     Indication: TARDIVE DYSKINESIA
     Route: 048
     Dates: start: 201709
  5. FENOFIBRATE. [Concomitant]
     Active Substance: FENOFIBRATE
     Dosage: EVENING
  6. VERAPAMIL [Concomitant]
     Active Substance: VERAPAMIL HYDROCHLORIDE
     Dosage: EVENING
  7. ASPIRIN. [Concomitant]
     Active Substance: ASPIRIN
  8. NEURONTIN [Suspect]
     Active Substance: GABAPENTIN
     Indication: MULTIPLE SCLEROSIS
     Dates: start: 2017, end: 2017
  9. NEURONTIN [Suspect]
     Active Substance: GABAPENTIN
     Dates: start: 2017
  10. DIVALPROEX ER [Concomitant]
     Active Substance: DIVALPROEX SODIUM
     Dosage: IN MORNING
  11. VENLAFAXINE HCL [Concomitant]
     Active Substance: VENLAFAXINE HYDROCHLORIDE

REACTIONS (5)
  - Stress [Recovered/Resolved]
  - Dysarthria [Recovered/Resolved]
  - Dyskinesia [Recovered/Resolved]
  - Drug interaction [Recovered/Resolved]
  - Multiple sclerosis relapse [Recovered/Resolved]

NARRATIVE: CASE EVENT DATE: 2017
